FAERS Safety Report 6197988-8 (Version None)
Quarter: 2009Q2

REPORT INFORMATION
  Report Type: 
  Country: None (occurrence: None)
  Receive Date: 20090521
  Receipt Date: 20090517
  Transmission Date: 20091009
  Serious: Yes (Hospitalization)
  Sender: FDA-Public Use
  Company Number: IL-ABBOTT-09P-082-0573909-00

PATIENT
  Age: 38 Year
  Sex: Female

DRUGS (4)
  1. KALETRA [Suspect]
     Indication: PROPHYLAXIS AGAINST HIV INFECTION
     Route: 048
     Dates: start: 20090406, end: 20090419
  2. COLCHICINE [Concomitant]
     Indication: FAMILIAL MEDITERRANEAN FEVER
  3. COMBIVIR [Concomitant]
     Indication: PROPHYLAXIS AGAINST HIV INFECTION
     Route: 048
     Dates: start: 20090406, end: 20090419
  4. TRUVADA [Concomitant]
     Indication: PROPHYLAXIS AGAINST HIV INFECTION
     Route: 048
     Dates: start: 20090419, end: 20090504

REACTIONS (12)
  - ASTHENIA [None]
  - DIARRHOEA [None]
  - HEADACHE [None]
  - HEPATIC ENZYME INCREASED [None]
  - HYPONATRAEMIA [None]
  - INAPPROPRIATE ANTIDIURETIC HORMONE SECRETION [None]
  - LEUKOPENIA [None]
  - MYOPATHY [None]
  - NECK PAIN [None]
  - PRESYNCOPE [None]
  - SUBARACHNOID HAEMORRHAGE [None]
  - THROMBOCYTOPENIA [None]
